FAERS Safety Report 19193450 (Version 4)
Quarter: 2021Q3

REPORT INFORMATION
  Report Type: Spontaneous
  Country: PF (occurrence: PF)
  Receive Date: 20210429
  Receipt Date: 20210817
  Transmission Date: 20211014
  Serious: Yes (Other)
  Sender: FDA-Public Use
  Company Number: PF-REGENERON PHARMACEUTICALS, INC.-2021-46302

PATIENT

DRUGS (1)
  1. EYLEA [Suspect]
     Active Substance: AFLIBERCEPT
     Indication: AGE-RELATED MACULAR DEGENERATION
     Dosage: 2 MG, ONCE (OS)
     Route: 031

REACTIONS (3)
  - Intraocular pressure increased [Unknown]
  - Blindness [Unknown]
  - Device use issue [Unknown]
